FAERS Safety Report 18285207 (Version 8)
Quarter: 2022Q3

REPORT INFORMATION
  Report Type: Spontaneous
  Country: US (occurrence: US)
  Receive Date: 20200918
  Receipt Date: 20220915
  Transmission Date: 20221027
  Serious: Yes (Hospitalization, Other)
  Sender: FDA-Public Use
  Company Number: US-PFIZER INC-2020359954

PATIENT
  Age: 56 Year
  Sex: Female

DRUGS (2)
  1. XELJANZ XR [Suspect]
     Active Substance: TOFACITINIB CITRATE
     Indication: Rheumatoid arthritis
     Dosage: 11 MG, 1X/DAY (ONCE DAILY)
     Route: 048
     Dates: start: 20200629
  2. XELJANZ XR [Suspect]
     Active Substance: TOFACITINIB CITRATE
     Dosage: 11 MG, 1X/DAY (ONCE DAILY)
     Route: 048
     Dates: start: 202205

REACTIONS (17)
  - Illness [Unknown]
  - Asthenia [Unknown]
  - Pneumonia [Unknown]
  - Neuropathy peripheral [Unknown]
  - Breast cancer female [Unknown]
  - Intentional dose omission [Unknown]
  - Joint swelling [Recovering/Resolving]
  - Malaise [Unknown]
  - Pain in extremity [Unknown]
  - Skin discolouration [Unknown]
  - Hypoaesthesia [Unknown]
  - Urine output increased [Unknown]
  - Condition aggravated [Unknown]
  - Blood pressure abnormal [Unknown]
  - Peripheral swelling [Unknown]
  - Gait inability [Unknown]
  - Arthralgia [Unknown]

NARRATIVE: CASE EVENT DATE: 20220101
